FAERS Safety Report 15101538 (Version 1)
Quarter: 2018Q2

REPORT INFORMATION
  Report Type: Spontaneous
  Country: US (occurrence: US)
  Receive Date: 20180611
  Receipt Date: 20180611
  Transmission Date: 20180711
  Serious: No
  Sender: FDA-Public Use
  Company Number: None

PATIENT
  Age: 35 Year
  Sex: Male

DRUGS (4)
  1. TETRABENAZINE. [Concomitant]
     Active Substance: TETRABENAZINE
  2. ALPRAZOLAM. [Concomitant]
     Active Substance: ALPRAZOLAM
  3. BOTOX [Suspect]
     Active Substance: ONABOTULINUMTOXINA
  4. ESZOPICLONE. [Concomitant]
     Active Substance: ESZOPICLONE

REACTIONS (3)
  - Therapy change [None]
  - Malaise [None]
  - Discomfort [None]

NARRATIVE: CASE EVENT DATE: 20180611
